FAERS Safety Report 8823889 (Version 4)
Quarter: 2013Q3

REPORT INFORMATION
  Report Type: Spontaneous
  Country: US (occurrence: US)
  Receive Date: 20121003
  Receipt Date: 20130702
  Transmission Date: 20140515
  Serious: Yes (Hospitalization, Disabling, Other)
  Sender: FDA-Public Use
  Company Number: US-009507513-1206USA00830

PATIENT
  Sex: Female
  Weight: 63.49 kg

DRUGS (9)
  1. FOSAMAX [Suspect]
     Indication: OSTEOPOROSIS
     Dosage: 10 MG, UNK
     Route: 048
     Dates: start: 199510, end: 2002
  2. FOSAMAX [Suspect]
     Dosage: 70 MG, QW
     Route: 048
     Dates: start: 2002
  3. FOSAMAX PLUS D [Suspect]
     Indication: OSTEOPOROSIS
     Dosage: 70MG/2800 IU
     Route: 048
     Dates: end: 200809
  4. FOSAMAX [Suspect]
     Indication: OSTEOPOROSIS
     Dosage: 70 MG, UNK
     Route: 048
     Dates: start: 200812, end: 201005
  5. VITAMINS (UNSPECIFIED) [Concomitant]
     Dosage: UNK, QD
     Dates: start: 1990
  6. LORATADINE [Concomitant]
     Indication: HYPERSENSITIVITY
     Dosage: UNK
     Dates: start: 2003
  7. CALCIUM (UNSPECIFIED) [Concomitant]
     Indication: OSTEOPOROSIS
  8. VITAMIN D (UNSPECIFIED) [Concomitant]
     Indication: OSTEOPOROSIS
  9. ALENDRONATE SODIUM [Suspect]
     Dosage: 70 MG, QW
     Route: 048
     Dates: end: 20101014

REACTIONS (52)
  - Femur fracture [Not Recovered/Not Resolved]
  - Femur fracture [Not Recovered/Not Resolved]
  - Chest pain [Unknown]
  - Acute myocardial infarction [Unknown]
  - Open reduction of fracture [Unknown]
  - Coronary artery bypass [Unknown]
  - Chest discomfort [Recovered/Resolved]
  - Open reduction of fracture [Unknown]
  - Fall [Not Recovered/Not Resolved]
  - Fall [Not Recovered/Not Resolved]
  - Cholecystectomy [Unknown]
  - Myocardial infarction [Unknown]
  - Hypertension [Unknown]
  - Bacterial infection [Unknown]
  - Blood cholesterol increased [Unknown]
  - Adverse event [Unknown]
  - Hypothyroidism [Unknown]
  - Hyperlipidaemia [Unknown]
  - Osteoarthritis [Not Recovered/Not Resolved]
  - Open angle glaucoma [Unknown]
  - Hysterectomy [Unknown]
  - Anaemia postoperative [Unknown]
  - Tachycardia [Unknown]
  - Supraventricular extrasystoles [Unknown]
  - Ventricular extrasystoles [Unknown]
  - Stress [Unknown]
  - Osteoarthritis [Unknown]
  - Actinic keratosis [Unknown]
  - Spinal pain [Unknown]
  - Urinary tract infection [Unknown]
  - Osteoarthritis [Unknown]
  - Cataract operation [Unknown]
  - Cataract [Unknown]
  - Aortic disorder [Unknown]
  - Aortic arteriosclerosis [Unknown]
  - Mitral valve incompetence [Unknown]
  - Tricuspid valve incompetence [Unknown]
  - Left ventricular hypertrophy [Unknown]
  - Mitral valve calcification [Unknown]
  - Aortic valve incompetence [Unknown]
  - Electrocardiogram T wave inversion [Unknown]
  - Atelectasis [Unknown]
  - Anxiety [Unknown]
  - Pain [Unknown]
  - Supraventricular extrasystoles [Unknown]
  - Angina unstable [Unknown]
  - Coronary artery disease [Unknown]
  - Anaemia [Recovered/Resolved]
  - Breath sounds abnormal [Unknown]
  - Ecchymosis [Unknown]
  - Hyponatraemia [Recovered/Resolved]
  - Drug ineffective [Unknown]
